FAERS Safety Report 7692025-8 (Version None)
Quarter: 2011Q3

REPORT INFORMATION
  Report Type: 
  Country: None (occurrence: None)
  Receive Date: 20110818
  Receipt Date: 20110812
  Transmission Date: 20111222
  Serious: Yes (Other)
  Sender: FDA-Public Use
  Company Number: US-ABBOTT-11P-163-0846200-00

PATIENT
  Age: 29 Year
  Sex: Male

DRUGS (9)
  1. ATIVAN [Concomitant]
     Indication: SLEEP TERROR
  2. HUMIRA [Suspect]
     Indication: CROHN'S DISEASE
     Dates: start: 20100701
  3. COCAINE [Suspect]
     Indication: PRODUCT USED FOR UNKNOWN INDICATION
  4. DILANTIN [Suspect]
     Indication: CONVULSION
  5. PROMETHAZINE [Concomitant]
     Indication: NAUSEA
  6. WELLBUTRIN [Concomitant]
     Indication: DEPRESSION
  7. DILAUDID [Concomitant]
     Indication: PAIN
  8. FOSAMAX [Concomitant]
     Indication: OSTEOPOROSIS
  9. IMURAN [Concomitant]
     Indication: CROHN'S DISEASE

REACTIONS (8)
  - TREATMENT NONCOMPLIANCE [None]
  - DIARRHOEA [None]
  - AMNESIA [None]
  - CROHN'S DISEASE [None]
  - DERMAL CYST [None]
  - EPILEPSY [None]
  - TREMOR [None]
  - LOSS OF CONSCIOUSNESS [None]
